FAERS Safety Report 8090787-1 (Version None)
Quarter: 2012Q1

REPORT INFORMATION
  Report Type: 
  Country: None (occurrence: None)
  Receive Date: 20120124
  Receipt Date: 20120112
  Transmission Date: 20120608
  Serious: Yes (Hospitalization)
  Sender: FDA-Public Use
  Company Number: 1000026336

PATIENT
  Age: 51 Year
  Sex: Female
  Weight: 57 kg

DRUGS (6)
  1. DEPAS (ETIZOLAM) (ETIZOLAM) [Concomitant]
  2. LEXAPRO [Suspect]
     Indication: MAJOR DEPRESSION
     Dosage: 20 MG (20 MG, 1 IN 1 D), ORAL, 10 MG (10 MG, 1 IN 1 D), ORAL
     Route: 048
     Dates: start: 20110901, end: 20111130
  3. LEXAPRO [Suspect]
     Indication: MAJOR DEPRESSION
     Dosage: 20 MG (20 MG, 1 IN 1 D), ORAL, 10 MG (10 MG, 1 IN 1 D), ORAL
     Route: 048
     Dates: start: 20111201, end: 20111205
  4. ROHYPNOL (FLUNITRAZEPAM) (FLUNITRAZEPAM) [Concomitant]
  5. AMOXAN (AMOXAPINE) (AMOXAPINE) [Concomitant]
  6. ZOLPIDEM TARTRATE [Concomitant]

REACTIONS (14)
  - ASPARTATE AMINOTRANSFERASE INCREASED [None]
  - LYMPHOCYTE PERCENTAGE DECREASED [None]
  - BLOOD CALCIUM DECREASED [None]
  - DECREASED APPETITE [None]
  - DEHYDRATION [None]
  - CONVULSION [None]
  - BLOOD ALBUMIN DECREASED [None]
  - BLOOD CREATINE PHOSPHOKINASE INCREASED [None]
  - WHITE BLOOD CELL COUNT DECREASED [None]
  - INSOMNIA [None]
  - TREMOR [None]
  - BLOOD BILIRUBIN INCREASED [None]
  - FEELING ABNORMAL [None]
  - BLOOD URIC ACID INCREASED [None]
